FAERS Safety Report 12784287 (Version 1)
Quarter: 2016Q3

REPORT INFORMATION
  Report Type: Spontaneous
  Country: CH (occurrence: CH)
  Receive Date: 20160927
  Receipt Date: 20160927
  Transmission Date: 20161109
  Serious: Yes (Other)
  Sender: FDA-Public Use
  Company Number: CH-BEH-200610460

PATIENT
  Age: 39 Year
  Sex: Female
  Weight: 87 kg

DRUGS (2)
  1. HAEMOCOMPLETTAN P [Suspect]
     Active Substance: FIBRINOGEN HUMAN
     Indication: FACTOR I DEFICIENCY
     Dosage: DAILY DOSE QUANTITY: 2, DAILY DOSE UNIT: G
     Route: 042
     Dates: start: 20060415, end: 20060415
  2. HAEMOCOMPLETTAN P [Suspect]
     Active Substance: FIBRINOGEN HUMAN
     Dosage: DAILY DOSE QUANTITY: 2, DAILY DOSE UNIT: G
     Route: 042
     Dates: start: 20060703, end: 20060703

REACTIONS (16)
  - Pruritus [Recovered/Resolved]
  - Skin swelling [Recovered/Resolved]
  - Oedema peripheral [Recovered/Resolved]
  - Lip swelling [Recovered/Resolved]
  - Peripheral swelling [Recovered/Resolved]
  - Angina pectoris [Recovered/Resolved]
  - Hypersensitivity [Recovered/Resolved]
  - Localised oedema [Recovered/Resolved]
  - Hypersensitivity [Recovered/Resolved]
  - Oesophageal pain [Recovered/Resolved]
  - Palatal oedema [Recovered/Resolved]
  - Chest pain [Recovered/Resolved]
  - Eyelid oedema [Recovered/Resolved]
  - Hypoaesthesia [Recovered/Resolved]
  - Dysphagia [Recovered/Resolved]
  - Pruritus [Recovered/Resolved]

NARRATIVE: CASE EVENT DATE: 20060416
